FAERS Safety Report 10531102 (Version 2)
Quarter: 2014Q4

REPORT INFORMATION
  Report Type: Spontaneous
  Country: US (occurrence: US)
  Receive Date: 20141021
  Receipt Date: 20141105
  Transmission Date: 20150529
  Serious: Yes (Hospitalization)
  Sender: FDA-Public Use
  Company Number: US-GLAXOSMITHKLINE-US2014GSK008922

PATIENT
  Sex: Female

DRUGS (6)
  1. IRON [Concomitant]
     Active Substance: IRON
  2. TAFINLAR [Suspect]
     Active Substance: DABRAFENIB MESYLATE
     Indication: MALIGNANT MELANOMA
     Dosage: UNK, U
  3. TRAVATAN [Concomitant]
     Active Substance: TRAVOPROST
  4. MULTIVITAMINS [Concomitant]
     Active Substance: VITAMINS
  5. ALPRAZOLAM. [Concomitant]
     Active Substance: ALPRAZOLAM
  6. MEKINIST [Suspect]
     Active Substance: TRAMETINIB DIMETHYL SULFOXIDE
     Indication: MALIGNANT MELANOMA
     Dosage: 2 MG, QD
     Route: 048
     Dates: start: 20140819

REACTIONS (3)
  - Dehydration [Unknown]
  - Rash generalised [Unknown]
  - Heart rate increased [Recovering/Resolving]
